FAERS Safety Report 4600460-7 (Version None)
Quarter: 2005Q1

REPORT INFORMATION
  Report Type: 
  Country: None (occurrence: None)
  Receive Date: 20050304
  Receipt Date: 20050220
  Transmission Date: 20050727
  Serious: Yes (Hospitalization)
  Sender: FDA-Public Use
  Company Number: 2005033785

PATIENT
  Age: 27 Year
  Sex: Male
  Weight: 65.7716 kg

DRUGS (1)
  1. SUDAFED 12 HOUR [Suspect]
     Indication: NASOPHARYNGITIS
     Dosage: ORAL
     Route: 048
     Dates: end: 20050218

REACTIONS (2)
  - HALLUCINATION [None]
  - OVERDOSE [None]
